FAERS Safety Report 9102992 (Version 7)
Quarter: 2015Q3

REPORT INFORMATION
  Report Type: Spontaneous
  Country: CA (occurrence: CA)
  Receive Date: 20130218
  Receipt Date: 20150708
  Transmission Date: 20151125
  Serious: Yes (Disabling, Other)
  Sender: FDA-Public Use
  Company Number: CA-ROCHE-1190397

PATIENT
  Age: 41 Year
  Sex: Female

DRUGS (10)
  1. XOLAIR [Suspect]
     Active Substance: OMALIZUMAB
     Indication: ASTHMA
     Route: 058
     Dates: start: 20130121
  2. TIOTROPIUM [Concomitant]
     Active Substance: TIOTROPIUM
  3. XOLAIR [Suspect]
     Active Substance: OMALIZUMAB
     Route: 058
     Dates: start: 20130218, end: 20130303
  4. ALVESCO [Concomitant]
     Active Substance: CICLESONIDE
  5. DAXAS [Concomitant]
     Active Substance: ROFLUMILAST
  6. ROFLUMILAST [Concomitant]
     Active Substance: ROFLUMILAST
  7. MONTELUKAST [Concomitant]
     Active Substance: MONTELUKAST SODIUM
  8. OXEZE [Concomitant]
  9. SINGULAIR [Concomitant]
     Active Substance: MONTELUKAST SODIUM
  10. XOLAIR [Suspect]
     Active Substance: OMALIZUMAB
     Indication: ASTHMA
     Route: 058
     Dates: start: 20130205

REACTIONS (26)
  - Neck pain [Unknown]
  - Headache [Unknown]
  - Vomiting [Unknown]
  - Oropharyngeal pain [Unknown]
  - Joint swelling [Recovering/Resolving]
  - Abasia [Unknown]
  - Peripheral swelling [Not Recovered/Not Resolved]
  - Paraesthesia oral [Unknown]
  - Pharyngeal oedema [Not Recovered/Not Resolved]
  - Foreign body [Unknown]
  - Ear pain [Unknown]
  - Myalgia [Unknown]
  - Musculoskeletal discomfort [Unknown]
  - Dizziness [Unknown]
  - Arthralgia [Recovering/Resolving]
  - Abdominal distension [Unknown]
  - Spinal pain [Unknown]
  - Serum sickness [Unknown]
  - Disorientation [Unknown]
  - Nausea [Not Recovered/Not Resolved]
  - Hyperhidrosis [Recovering/Resolving]
  - Musculoskeletal stiffness [Unknown]
  - Pyrexia [Recovering/Resolving]
  - Fatigue [Recovering/Resolving]
  - Arthritis [Unknown]
  - Bladder dilatation [Unknown]

NARRATIVE: CASE EVENT DATE: 20130121
